FAERS Safety Report 22350663 (Version 2)
Quarter: 2023Q2

REPORT INFORMATION
  Report Type: Report from Study
  Country: US (occurrence: US)
  Receive Date: 20230522
  Receipt Date: 20230620
  Transmission Date: 20230722
  Serious: Yes (Other)
  Sender: FDA-Public Use
  Company Number: US-EXELIXIS-CABO-23063735

PATIENT
  Sex: Male
  Weight: 84.685 kg

DRUGS (1)
  1. CABOMETYX [Suspect]
     Active Substance: CABOZANTINIB S-MALATE
     Indication: Product used for unknown indication
     Dosage: UNK
     Dates: end: 20230415

REACTIONS (5)
  - Cardiac failure [Unknown]
  - Thirst [Unknown]
  - Peripheral swelling [Unknown]
  - Rash [Unknown]
  - Pain in extremity [Recovering/Resolving]
